FAERS Safety Report 8787015 (Version 1)
Quarter: 2012Q4

REPORT INFORMATION
  Report Type: 
  Country: IT (occurrence: IT)
  Receive Date: 20120914
  Receipt Date: 20120914
  Transmission Date: 20130627
  Serious: Yes (Other)
  Sender: FDA-Public Use
  Company Number: PHHY2012IT079618

PATIENT
  Age: 77 Year
  Sex: Female

DRUGS (6)
  1. FLUCONAZOLE [Suspect]
     Indication: CANDIDIASIS
     Dosage: 100 mg, daily
     Route: 048
     Dates: start: 20120810, end: 20120828
  2. COUMADIN [Interacting]
     Indication: ATRIAL FIBRILLATION
     Dosage: 13.75 mg, weekly dose
     Route: 048
     Dates: start: 20050127, end: 20120823
  3. METILDIGOXIN [Concomitant]
  4. FUROSEMIDE [Concomitant]
  5. CARVEDILOL [Concomitant]
  6. IRBESARTAN [Concomitant]

REACTIONS (3)
  - Haematuria [Recovered/Resolved]
  - International normalised ratio increased [Recovered/Resolved]
  - Drug interaction [Unknown]
